FAERS Safety Report 8379472-6 (Version None)
Quarter: 2012Q2

REPORT INFORMATION
  Report Type: 
  Country: None (occurrence: None)
  Receive Date: 20120523
  Receipt Date: 20120515
  Transmission Date: 20120825
  Serious: Yes (Other)
  Sender: FDA-Public Use
  Company Number: US-JNJFOC-20120514800

PATIENT
  Age: 44 Year
  Sex: Female
  Weight: 62.6 kg

DRUGS (3)
  1. ZYRTEC [Suspect]
     Route: 048
  2. ZYRTEC [Suspect]
     Indication: SEASONAL ALLERGY
     Route: 048
     Dates: end: 20120401
  3. AN UNKNOWN MEDICATION [Concomitant]
     Indication: PRODUCT USED FOR UNKNOWN INDICATION
     Route: 065

REACTIONS (8)
  - ALOPECIA [None]
  - WEIGHT DECREASED [None]
  - DIZZINESS [None]
  - EATING DISORDER [None]
  - CHRONIC SINUSITIS [None]
  - NAUSEA [None]
  - EPISTAXIS [None]
  - WITHDRAWAL SYNDROME [None]
